FAERS Safety Report 9106155 (Version 3)
Quarter: 2013Q2

REPORT INFORMATION
  Report Type: Spontaneous
  Country: US (occurrence: US)
  Receive Date: 20130221
  Receipt Date: 20130404
  Transmission Date: 20140414
  Serious: Yes (Death, Other)
  Sender: FDA-Public Use
  Company Number: PHEH2013US004208

PATIENT
  Age: 75 Year
  Sex: Female
  Weight: 62 kg

DRUGS (94)
  1. RECLAST [Suspect]
     Indication: OSTEOPOROSIS
     Dosage: 5 MG, UNK
     Route: 042
     Dates: start: 20101122
  2. RECLAST [Suspect]
     Dosage: 5 MG, UNK
     Route: 042
     Dates: start: 20120521
  3. ELAVIL [Concomitant]
     Dosage: 25 MG, QHS
     Dates: start: 20100316
  4. ELAVIL [Concomitant]
     Dosage: 25 MG, QHS
     Dates: start: 20100521
  5. ELAVIL [Concomitant]
     Dosage: 25 MG, UNK
     Dates: start: 20100927
  6. ELAVIL [Concomitant]
     Dosage: 25 MG, QHS
     Dates: start: 20101021
  7. ELAVIL [Concomitant]
     Dosage: 25 MG, QHS
     Dates: start: 20101122
  8. ELAVIL [Concomitant]
     Dosage: 25 MG, UNK
     Dates: start: 20101217
  9. ELAVIL [Concomitant]
     Dosage: 25 MG, QHS
     Dates: start: 20110216
  10. ELAVIL [Concomitant]
     Dosage: 25 MG, QHS
     Dates: start: 20110508
  11. ELAVIL [Concomitant]
     Dosage: 25 MG, QHS
     Dates: start: 20110720
  12. FLUOXETINE HCL [Concomitant]
     Dosage: 20 MG, QAM
     Dates: start: 20100316
  13. FLUOXETINE HCL [Concomitant]
     Dosage: 20 MG QAM
     Dates: start: 20100521
  14. FLUOXETINE HCL [Concomitant]
     Dosage: 20 MG QAM
     Dates: start: 20100927
  15. FLUOXETINE HCL [Concomitant]
     Dosage: 20 MG QAM
     Dates: start: 20101021
  16. FLUOXETINE HCL [Concomitant]
     Dosage: 20 MG QAM
     Dates: start: 20101122
  17. FLUOXETINE HCL [Concomitant]
     Dosage: 20 MG QAM
     Dates: start: 20101217
  18. FLUOXETINE HCL [Concomitant]
     Dosage: 20 MG QAM
     Dates: start: 20110216
  19. FLUOXETINE HCL [Concomitant]
     Dosage: 20 MG QAM
     Dates: start: 20110508
  20. FLUOXETINE HCL [Concomitant]
     Dosage: 20 MG QAM
     Dates: start: 20110720
  21. ARAVA [Concomitant]
     Dosage: 20 MG, QAM
     Dates: start: 20100316
  22. ARAVA [Concomitant]
     Dosage: 20 MG, QAM
     Dates: start: 20100521
  23. ARAVA [Concomitant]
     Dosage: 20 MG, QAM
     Dates: start: 20100927
  24. ARAVA [Concomitant]
     Dosage: 20 MG, QAM
     Dates: start: 20101021
  25. ARAVA [Concomitant]
     Dosage: 20 MG, QAM
     Dates: start: 20101122
  26. ARAVA [Concomitant]
     Dosage: 20 MG, QAM
     Dates: start: 20101217
  27. ARAVA [Concomitant]
     Dosage: 20 MG, QAM
     Dates: start: 20110216
  28. ARAVA [Concomitant]
     Dosage: 20 MG, QAM
     Dates: start: 20110508
  29. ARAVA [Concomitant]
     Dosage: 20 MG, QAM
     Dates: start: 20110720
  30. LEVOXYL [Concomitant]
     Dosage: 25 MG, QAM
     Dates: start: 20100316
  31. LEVOXYL [Concomitant]
     Dosage: 25 MG, QAM
     Dates: start: 20100521
  32. LEVOXYL [Concomitant]
     Dosage: 25 MG, QAM
     Dates: start: 20100927
  33. LEVOXYL [Concomitant]
     Dosage: 25 MG, QAM
     Dates: start: 20101021
  34. LEVOXYL [Concomitant]
     Dosage: 25 MG, QAM
     Dates: start: 20101122
  35. LEVOXYL [Concomitant]
     Dosage: 25 MG, QAM
     Dates: start: 20101217
  36. LEVOXYL [Concomitant]
     Dosage: 25 MG, QAM
     Dates: start: 20110216
  37. LEVOXYL [Concomitant]
     Dosage: 25 MG, QAM
     Dates: start: 20110508
  38. LEVOXYL [Concomitant]
     Dosage: 25 MG, QAM
     Dates: start: 20110720
  39. NAMENDA [Concomitant]
     Dosage: 10 MG, QAM
     Dates: start: 20100316
  40. NAMENDA [Concomitant]
     Dosage: 10 MG, QAM
     Dates: start: 20100521
  41. NAMENDA [Concomitant]
     Dosage: 10 MG, QAM
     Dates: start: 20100927
  42. NAMENDA [Concomitant]
     Dosage: 10 MG, QAM
     Dates: start: 20101021
  43. NAMENDA [Concomitant]
     Dosage: 10 MG, QAM
     Dates: start: 20101122
  44. NAMENDA [Concomitant]
     Dosage: 10 MG, QAM
     Dates: start: 20101217
  45. NAMENDA [Concomitant]
     Dosage: 10 MG, QAM
     Dates: start: 20110216
  46. NAMENDA [Concomitant]
     Dosage: 10 MG, QAM
     Dates: start: 20110508
  47. NAMENDA [Concomitant]
     Dosage: 10 MG, QAM
     Dates: start: 20110720
  48. NEXIAM [Concomitant]
     Dosage: 20 MG, QAM
     Dates: start: 20100316
  49. NEXIAM [Concomitant]
     Dosage: 20 MG, QAM
     Dates: start: 20100521
  50. NEXIAM [Concomitant]
     Dosage: 20 MG, QAM
     Dates: start: 20100927
  51. NEXIAM [Concomitant]
     Dosage: 20 MG, QAM
     Dates: start: 20101021
  52. NEXIAM [Concomitant]
     Dosage: 20 MG, QAM
     Dates: start: 20101122
  53. NEXIAM [Concomitant]
     Dosage: 20 MG, QAM
     Dates: start: 20101217
  54. NEXIAM [Concomitant]
     Dosage: 20 MG, QAM
     Dates: start: 20110216
  55. NEXIAM [Concomitant]
     Dosage: 20 MG, QAM
     Dates: start: 20110508
  56. NEXIAM [Concomitant]
     Dosage: 20 MG, QAM
     Dates: start: 20110720
  57. EXELON [Concomitant]
     Dosage: 4.6 MG, QAM
     Dates: start: 20100316
  58. EXELON [Concomitant]
     Dosage: 4.6 MG, QAM
     Dates: start: 20100521
  59. EXELON [Concomitant]
     Dosage: 4.6 MG, QAM
     Dates: start: 20100927
  60. EXELON [Concomitant]
     Dosage: 4.6 MG, QAM
     Dates: start: 20101021
  61. EXELON [Concomitant]
     Dosage: 4.6 MG, QAM
     Dates: start: 20101122
  62. EXELON [Concomitant]
     Dosage: 4.6 MG, QAM
     Dates: start: 20101217
  63. EXELON [Concomitant]
     Dosage: 4.6 MG, QAM
     Dates: start: 20110216
  64. EXELON [Concomitant]
     Dosage: 4.6 MG, QAM
     Dates: start: 20110508
  65. EXELON [Concomitant]
     Dosage: 4.6 MG, QAM
     Dates: start: 20110720
  66. PROCRIT [Concomitant]
     Dosage: 4000 IU, UNK
     Dates: start: 20100316
  67. PREDNISONE [Concomitant]
     Dosage: 5 MG, BID
     Dates: start: 20100927
  68. PREDNISONE [Concomitant]
     Dosage: 5 MG, BID
     Dates: start: 20101021
  69. PREDNISONE [Concomitant]
     Dosage: 5 MG, BID
     Dates: start: 20101122
  70. PREDNISONE [Concomitant]
     Dosage: 5 MG, BID
     Dates: start: 20110508
  71. PREDNISONE [Concomitant]
     Dosage: 5 MG, BID
     Dates: start: 20110720
  72. VIT D [Concomitant]
     Dosage: 1000 IU, UNK
     Dates: start: 20100927
  73. VIT D [Concomitant]
     Dosage: 1000 IU, UNK
     Dates: start: 20101021
  74. VIT D [Concomitant]
     Dosage: 1000 IU, UNK
     Dates: start: 20101122
  75. VIT D [Concomitant]
     Dosage: 2000 UNK, UNK
     Dates: start: 20101217
  76. VIT D [Concomitant]
     Dosage: 2000 UNK, UNK
     Dates: start: 20110216
  77. VIT D [Concomitant]
     Dosage: 2000 UNK, UNK
     Dates: start: 20110508
  78. VIT D [Concomitant]
     Dosage: 2000 UNK, UNK
     Dates: start: 20110720
  79. MULTIVIT [Concomitant]
     Dosage: UNK
     Dates: start: 20100927
  80. MULTIVIT [Concomitant]
     Dosage: UNK
     Dates: start: 20101021
  81. MULTIVIT [Concomitant]
     Dosage: UNK
     Dates: start: 20101122
  82. MULTIVIT [Concomitant]
     Dosage: UNK
     Dates: start: 20101217
  83. MULTIVIT [Concomitant]
     Dosage: UNK
     Dates: start: 20110216
  84. MULTIVIT [Concomitant]
     Dosage: UNK
     Dates: start: 20110508
  85. MULTIVIT [Concomitant]
     Dosage: UNK
     Dates: start: 20110720
  86. BABY ASPIRIN [Concomitant]
     Dosage: UNK
     Dates: start: 20100927
  87. BABY ASPIRIN [Concomitant]
     Dosage: UNK
     Dates: start: 20101021
  88. BABY ASPIRIN [Concomitant]
     Dosage: UNK
     Dates: start: 20101122
  89. BABY ASPIRIN [Concomitant]
     Dosage: UNK
     Dates: start: 20101217
  90. BABY ASPIRIN [Concomitant]
     Dosage: UNK
     Dates: start: 20110216
  91. BABY ASPIRIN [Concomitant]
     Dosage: UNK
     Dates: start: 20110508
  92. BABY ASPIRIN [Concomitant]
     Dosage: UNK
     Dates: start: 20110720
  93. IRON [Concomitant]
  94. TRANSFUSIONS [Concomitant]

REACTIONS (19)
  - Death [Fatal]
  - Angiopathy [Unknown]
  - Rheumatoid arthritis [Unknown]
  - Arthropathy [Unknown]
  - Joint swelling [Unknown]
  - Wrist deformity [Unknown]
  - Musculoskeletal stiffness [Unknown]
  - Joint range of motion decreased [Unknown]
  - Spinal claudication [Unknown]
  - Balance disorder [Unknown]
  - Anaemia [Unknown]
  - Haematocrit decreased [Unknown]
  - Haemoglobin decreased [Unknown]
  - Dry eye [Unknown]
  - White blood cell count decreased [Unknown]
  - Dry mouth [Unknown]
  - C-reactive protein increased [Unknown]
  - Fatigue [Unknown]
  - Neck pain [Unknown]
